FAERS Safety Report 9719015 (Version 2)
Quarter: 2014Q1

REPORT INFORMATION
  Report Type: Report from Study
  Country: CA (occurrence: CA)
  Receive Date: 20131127
  Receipt Date: 20140107
  Transmission Date: 20141002
  Serious: Yes (Death, Hospitalization)
  Sender: FDA-Public Use
  Company Number: CA-ABBVIE-13P-028-1173991-00

PATIENT
  Age: 77 Year
  Sex: Male
  Weight: 98.06 kg

DRUGS (4)
  1. LUPRON DEPOT [Suspect]
     Indication: PROSTATE CANCER
     Route: 030
     Dates: start: 20090409
  2. CASODEX [Concomitant]
  3. ASPIRIN [Concomitant]
  4. METAMUCIL [Concomitant]

REACTIONS (2)
  - Cerebrovascular accident [Fatal]
  - Dizziness [Recovered/Resolved]
